FAERS Safety Report 5456415-6 (Version None)
Quarter: 2007Q3

REPORT INFORMATION
  Report Type: 
  Country: None (occurrence: None)
  Receive Date: 20070918
  Receipt Date: 20070904
  Transmission Date: 20080115
  Serious: Yes (Hospitalization)
  Sender: FDA-Public Use
  Company Number: DE-ELI_LILLY_AND_COMPANY-DE200709000518

PATIENT
  Age: 67 Year
  Sex: Female
  Weight: 48 kg

DRUGS (5)
  1. TERIPARATIDE [Suspect]
     Dosage: UNK, UNKNOWN
     Route: 058
     Dates: start: 20040929, end: 20050207
  2. NOVODIGAL MITE [Concomitant]
     Indication: CARDIAC FAILURE
     Dosage: 1 D/F, UNKNOWN
     Route: 048
  3. PANTOPRAZOLE SODIUM [Concomitant]
     Indication: PROPHYLAXIS AGAINST GASTROINTESTINAL ULCER
     Dosage: UNK, UNKNOWN
     Route: 065
  4. MOBIC [Concomitant]
     Indication: RHEUMATOID ARTHRITIS
     Dosage: 15 MG, UNKNOWN
     Route: 048
  5. METYSOLON [Concomitant]
     Indication: RHEUMATOID ARTHRITIS
     Dosage: 4 MG, UNKNOWN
     Route: 048
     Dates: start: 20020101

REACTIONS (1)
  - DUODENAL ULCER PERFORATION [None]
